FAERS Safety Report 5399636-3 (Version None)
Quarter: 2007Q3

REPORT INFORMATION
  Report Type: 
  Country: None (occurrence: None)
  Receive Date: 20070727
  Receipt Date: 20070718
  Transmission Date: 20080115
  Serious: Yes (Hospitalization)
  Sender: FDA-Public Use
  Company Number: BR-PFIZER INC-2007052123

PATIENT
  Sex: Male
  Weight: 56 kg

DRUGS (3)
  1. EXUBERA [Suspect]
     Indication: DIABETES MELLITUS
     Route: 055
  2. NOVOLIN 50/50 [Concomitant]
  3. ATENOLOL [Concomitant]

REACTIONS (1)
  - COMA [None]
